FAERS Safety Report 10197519 (Version 1)
Quarter: 2014Q2

REPORT INFORMATION
  Report Type: Spontaneous
  Country: US (occurrence: US)
  Receive Date: 20140527
  Receipt Date: 20140527
  Transmission Date: 20141212
  Serious: No
  Sender: FDA-Public Use
  Company Number: US-NOVEN-14US008928

PATIENT
  Age: 50 Year
  Sex: Female

DRUGS (2)
  1. MINIVELLE [Suspect]
     Indication: ARRHYTHMIA
     Dosage: 0.05 MG/D, 2/WK
     Route: 062
     Dates: start: 201401
  2. MINIVELLE [Suspect]
     Dosage: 0.0375 MG/D, 2/WK
     Route: 062
     Dates: start: 201312

REACTIONS (3)
  - Off label use [Not Recovered/Not Resolved]
  - Drug prescribing error [Not Recovered/Not Resolved]
  - No adverse event [None]
